FAERS Safety Report 20655409 (Version 2)
Quarter: 2022Q1

REPORT INFORMATION
  Report Type: Spontaneous
  Country: CZ (occurrence: CZ)
  Receive Date: 20220330
  Receipt Date: 20220330
  Transmission Date: 20220423
  Serious: Yes (Death, Hospitalization, Other)
  Sender: FDA-Public Use
  Company Number: CZ-AMERICAN REGENT INC-2022000823

PATIENT
  Age: 18 Year
  Sex: Female

DRUGS (3)
  1. FERINJECT [Suspect]
     Active Substance: FERRIC CARBOXYMALTOSE
     Indication: Anaemia
     Dosage: UNK
     Route: 042
     Dates: start: 20200225
  2. VENOFER [Suspect]
     Active Substance: IRON SUCROSE
     Indication: Anaemia
     Dosage: UNK
     Route: 042
     Dates: start: 20200225
  3. IRON POLYMALTOSE [Suspect]
     Active Substance: IRON POLYMALTOSE
     Indication: Anaemia
     Dosage: UNK
     Route: 048
     Dates: start: 20200225

REACTIONS (15)
  - Ascites [Fatal]
  - Anaemia [Fatal]
  - Haematemesis [Fatal]
  - Condition aggravated [Fatal]
  - Pancreatic carcinoma [Unknown]
  - Metastases to liver [Unknown]
  - Dyspnoea [Fatal]
  - Abdominal lymphadenopathy [Unknown]
  - Microcytic anaemia [Unknown]
  - Thrombocytosis [Unknown]
  - Decreased appetite [Unknown]
  - Back pain [Unknown]
  - Vomiting [Unknown]
  - Abdominal pain [Unknown]
  - Nausea [Unknown]

NARRATIVE: CASE EVENT DATE: 20200101
